FAERS Safety Report 9797058 (Version 1)
Quarter: 2014Q1

REPORT INFORMATION
  Report Type: Spontaneous
  Country: US (occurrence: US)
  Receive Date: 20140105
  Receipt Date: 20140105
  Transmission Date: 20141002
  Serious: Yes (Hospitalization, Other)
  Sender: FDA-Public Use
  Company Number: US-PFIZER INC-2014001919

PATIENT
  Sex: Male

DRUGS (1)
  1. NEURONTIN [Suspect]
     Indication: BACK PAIN
     Dosage: 3000 MG, DAILY

REACTIONS (9)
  - Off label use [Unknown]
  - Pneumonia [Unknown]
  - Renal failure [Unknown]
  - Pyrexia [Unknown]
  - Cough [Unknown]
  - Inflammation [Unknown]
  - Drug withdrawal syndrome [Unknown]
  - Weight decreased [Unknown]
  - Sputum discoloured [Unknown]
